FAERS Safety Report 5643075-4 (Version None)
Quarter: 2008Q1

REPORT INFORMATION
  Report Type: 
  Country: None (occurrence: None)
  Receive Date: 20080227
  Receipt Date: 20080227
  Transmission Date: 20080703
  Serious: No
  Sender: FDA-Public Use
  Company Number: None

PATIENT
  Age: 71 Year
  Sex: Male
  Weight: 117 kg

DRUGS (1)
  1. NAFCILLIN SODIUM [Suspect]
     Dosage: 2GM OTHER IV
     Route: 042
     Dates: start: 20071210, end: 20080106

REACTIONS (1)
  - RENAL FAILURE ACUTE [None]
